FAERS Safety Report 21297198 (Version 1)
Quarter: 2022Q3

REPORT INFORMATION
  Report Type: Spontaneous
  Country: IN (occurrence: IN)
  Receive Date: 20220906
  Receipt Date: 20220906
  Transmission Date: 20221027
  Serious: Yes (Other)
  Sender: FDA-Public Use
  Company Number: IN-ALVOGEN-2022-ALVOGEN-120817

PATIENT
  Age: 60 Year
  Sex: Male

DRUGS (6)
  1. DOXORUBICIN [Suspect]
     Active Substance: DOXORUBICIN
     Indication: B-cell lymphoma
     Dosage: TOTAL SIX CHEMO CYCLE R-CHOP REGIMEN
     Route: 042
  2. RITUXIMAB [Suspect]
     Active Substance: RITUXIMAB
     Indication: B-cell lymphoma
     Dosage: TOTAL SIX CHEMO CYCLE R-CHOP REGIMEN
     Route: 042
  3. CYCLOPHOSPHAMIDE [Suspect]
     Active Substance: CYCLOPHOSPHAMIDE
     Indication: B-cell lymphoma
     Dosage: TOTAL SIX CHEMO CYCLE R-CHOP REGIMEN
     Route: 042
  4. VINCRISTINE [Suspect]
     Active Substance: VINCRISTINE
     Indication: B-cell lymphoma
     Dosage: TOTAL SIX CHEMO CYCLE R-CHOP REGIMEN
     Route: 042
  5. PREDNISOLONE [Suspect]
     Active Substance: PREDNISOLONE
     Indication: B-cell lymphoma
     Dosage: TOTAL SIX CHEMO CYCLE R-CHOP REGIMEN, 100 MG /ORAL/ DAYS TO 5
     Route: 048
  6. PEGFILGRASTIM [Suspect]
     Active Substance: PEGFILGRASTIM
     Indication: B-cell lymphoma
     Dosage: AS PER RADIOTHERAPIST INSTRUCTIONS FOR EACH CYCLE
     Route: 058

REACTIONS (3)
  - Non-Hodgkin^s lymphoma [Unknown]
  - B-cell lymphoma recurrent [Unknown]
  - Myiasis [Unknown]
